FAERS Safety Report 8757036 (Version 1)
Quarter: 2012Q4

REPORT INFORMATION
  Report Type: 
  Country: FR (occurrence: FR)
  Receive Date: 20120828
  Receipt Date: 20120828
  Transmission Date: 20130627
  Serious: Yes (Death, Hospitalization)
  Sender: FDA-Public Use
  Company Number: FR-SANOFI-AVENTIS-2012SA060373

PATIENT
  Age: 83 Year
  Sex: Male

DRUGS (16)
  1. CALCIPARINE [Suspect]
     Indication: DRUG USE FOR UNKNOWN INDICATION
     Route: 058
     Dates: start: 201206, end: 20120706
  2. KARDEGIC [Suspect]
     Indication: DRUG USE FOR UNKNOWN INDICATION
     Dosage: strength: 75mg
     Route: 048
     Dates: end: 20120706
  3. RIFADINE [Suspect]
     Indication: DRUG USE FOR UNKNOWN INDICATION
     Route: 048
     Dates: start: 201206, end: 20120706
  4. PREVISCAN [Suspect]
     Indication: DRUG USE FOR UNKNOWN INDICATION
     Dosage: dose according to INR
     Route: 065
     Dates: end: 20120706
  5. FORTUM [Suspect]
     Indication: DRUG USE FOR UNKNOWN INDICATION
     Route: 048
     Dates: start: 201206, end: 20120706
  6. BACTRIM FORTE [Suspect]
     Indication: DRUG USE FOR UNKNOWN INDICATION
     Route: 048
     Dates: start: 201206, end: 20120706
  7. LASILIX [Concomitant]
  8. TAHOR [Concomitant]
  9. VASTAREL [Concomitant]
  10. SINGULAIR [Concomitant]
  11. GAVISCON [Concomitant]
  12. SEROPLEX [Concomitant]
  13. INEXIUM [Concomitant]
  14. VITAMINE B [Concomitant]
  15. PARACETAMOL [Concomitant]
  16. CONTRAMAL [Concomitant]

REACTIONS (3)
  - Rectal haemorrhage [Fatal]
  - Upper gastrointestinal haemorrhage [Fatal]
  - Melaena [Fatal]
